FAERS Safety Report 5635170-0 (Version None)
Quarter: 2008Q1

REPORT INFORMATION
  Report Type: 
  Country: None (occurrence: None)
  Receive Date: 20080222
  Receipt Date: 20080211
  Transmission Date: 20080703
  Serious: Yes (Death, Other)
  Sender: FDA-Public Use
  Company Number: DE-PFIZER INC-2007061270

PATIENT
  Age: 26 Year
  Sex: Male

DRUGS (5)
  1. ZELDOX (CAPSULES) [Suspect]
     Indication: SCHIZOPHRENIA, PARANOID TYPE
     Dosage: DAILY DOSE:120MG
     Route: 048
  2. LORAZEPAM [Concomitant]
  3. RISPERDAL [Concomitant]
     Dates: end: 20070101
  4. DIAZEPAM [Concomitant]
     Route: 048
     Dates: start: 20070426
  5. AKINETON [Concomitant]
     Route: 048
     Dates: start: 20070504

REACTIONS (6)
  - COMPLETED SUICIDE [None]
  - ERECTILE DYSFUNCTION [None]
  - FALL [None]
  - PARKINSONISM [None]
  - RESTLESSNESS [None]
  - SLEEP DISORDER [None]
